FAERS Safety Report 5824412-4 (Version None)
Quarter: 2008Q3

REPORT INFORMATION
  Report Type: 
  Country: None (occurrence: None)
  Receive Date: 20080728
  Receipt Date: 20080724
  Transmission Date: 20090109
  Serious: Yes (Other)
  Sender: FDA-Public Use
  Company Number: B0361076A

PATIENT
  Age: 48 Year
  Sex: Female

DRUGS (4)
  1. PAROXETINE HCL [Suspect]
     Indication: DEPRESSION
     Route: 048
     Dates: start: 19990301
  2. PAROXETINE HCL [Suspect]
     Route: 065
  3. DIAZEPAM [Concomitant]
     Dates: start: 19990601
  4. PROZAC [Concomitant]
     Dates: start: 20070308, end: 20070401

REACTIONS (19)
  - ANKLE FRACTURE [None]
  - ANXIETY [None]
  - APATHY [None]
  - ARTHRALGIA [None]
  - DEPRESSED MOOD [None]
  - DIZZINESS [None]
  - DRUG WITHDRAWAL SYNDROME [None]
  - FALL [None]
  - FATIGUE [None]
  - HEADACHE [None]
  - HEART RATE INCREASED [None]
  - HYPERHIDROSIS [None]
  - IRRITABILITY [None]
  - NIGHTMARE [None]
  - PALPITATIONS [None]
  - PARAESTHESIA [None]
  - POOR QUALITY SLEEP [None]
  - TEARFULNESS [None]
  - WITHDRAWAL SYNDROME [None]
